FAERS Safety Report 5494994-3 (Version None)
Quarter: 2007Q4

REPORT INFORMATION
  Report Type: 
  Country: None (occurrence: None)
  Receive Date: 20071024
  Receipt Date: 20071022
  Transmission Date: 20080405
  Serious: Yes (Life-Threatening, Hospitalization)
  Sender: FDA-Public Use
  Company Number: PHEH2007US11548

PATIENT
  Age: 72 Year
  Sex: Female
  Weight: 76.19 kg

DRUGS (13)
  1. SOTALOL HYDROCHLORIDE [Suspect]
     Indication: ATRIAL FIBRILLATION
     Dosage: 80 MG, BID
     Route: 048
     Dates: start: 20070401, end: 20070810
  2. TEKTURNA [Suspect]
     Indication: HYPERTENSION
     Dosage: 150 MG, QD
     Route: 048
     Dates: start: 20070803, end: 20070812
  3. FUROSEMIDE [Concomitant]
     Indication: HYPERTENSION
     Dosage: 40 MG, QD
  4. CLONIDINE [Concomitant]
     Dosage: 0.1 MG, QD
  5. LANTUS [Concomitant]
  6. ZOLOFT [Concomitant]
     Dosage: 150 MG, QD
  7. SYNTHROID [Concomitant]
     Dosage: 25 UG, QD
  8. AMIODARONE [Concomitant]
     Dosage: 200 MG, QD
  9. TOPROL-XL [Concomitant]
     Dosage: 25 MG, QD
  10. BENICAR [Concomitant]
     Dosage: 40 MG, QD
  11. ACETYLSALICYLIC ACID SRT [Concomitant]
     Dosage: 325 MG, QD
  12. NORVASC [Concomitant]
     Dosage: 10 MG, QD
  13. PRANDIN [Concomitant]
     Dosage: 3 MG, QD

REACTIONS (17)
  - ARRHYTHMIA [None]
  - BLOOD CREATININE INCREASED [None]
  - CARDIAC VALVE DISEASE [None]
  - CARDIOVERSION [None]
  - DRUG INTERACTION [None]
  - ECHOCARDIOGRAM ABNORMAL [None]
  - EJECTION FRACTION DECREASED [None]
  - ELECTROCARDIOGRAM QT PROLONGED [None]
  - HEART VALVE INCOMPETENCE [None]
  - HYPOTENSION [None]
  - MALAISE [None]
  - PALPITATIONS [None]
  - SYNCOPE [None]
  - TACHYCARDIA [None]
  - TORSADE DE POINTES [None]
  - VENTRICULAR EXTRASYSTOLES [None]
  - VENTRICULAR TACHYCARDIA [None]
